FAERS Safety Report 4405363-9 (Version None)
Quarter: 2004Q3

REPORT INFORMATION
  Report Type: 
  Country: None (occurrence: None)
  Receive Date: 20040716
  Receipt Date: 20040707
  Transmission Date: 20050211
  Serious: Yes (Hospitalization)
  Sender: FDA-Public Use
  Company Number: 04P-130-0254695-00

PATIENT
  Age: 67 Year
  Sex: Female

DRUGS (4)
  1. BIAXIN [Suspect]
     Indication: RESPIRATORY TRACT INFECTION
     Dosage: 500 MG, 2 IN 1 D, PER ORAL
     Route: 048
     Dates: start: 20031230
  2. DIGOXIN [Suspect]
     Indication: CARDIAC FAILURE CONGESTIVE
     Dosage: 0.125 MG, 1 IN 1 D, PER ORAL
     Route: 048
     Dates: end: 20040101
  3. TRAMADOL HCL [Suspect]
  4. CISAPRIDE                  (CISAPRIDE) [Suspect]

REACTIONS (6)
  - DEHYDRATION [None]
  - DRUG INTERACTION [None]
  - DYSARTHRIA [None]
  - PROSTRATION [None]
  - RESPIRATORY TRACT INFECTION [None]
  - THERAPEUTIC AGENT TOXICITY [None]
